FAERS Safety Report 5597157-6 (Version None)
Quarter: 2008Q1

REPORT INFORMATION
  Report Type: 
  Country: None (occurrence: None)
  Receive Date: 20080121
  Receipt Date: 20080110
  Transmission Date: 20080703
  Serious: Yes (Other)
  Sender: FDA-Public Use
  Company Number: FR-JNJFOC-20071204213

PATIENT
  Age: 39 Year
  Sex: Female
  Weight: 42 kg

DRUGS (5)
  1. PREZISTA [Suspect]
     Indication: HIV INFECTION
     Route: 048
  2. EPIVIR [Suspect]
     Indication: HIV INFECTION
     Route: 048
  3. VIDEX [Suspect]
     Indication: HIV INFECTION
     Route: 048
  4. NORVIR [Suspect]
     Indication: HIV INFECTION
     Route: 048
  5. DEROXAT [Concomitant]
     Indication: DEPRESSION
     Route: 048

REACTIONS (6)
  - COUGH [None]
  - DIARRHOEA [None]
  - MOUTH ULCERATION [None]
  - NASOPHARYNGITIS [None]
  - PYREXIA [None]
  - WEIGHT DECREASED [None]
